FAERS Safety Report 11245723 (Version 1)
Quarter: 2015Q3

REPORT INFORMATION
  Report Type: Spontaneous
  Country: US (occurrence: US)
  Receive Date: 20150707
  Receipt Date: 20150707
  Transmission Date: 20151125
  Serious: No
  Sender: FDA-Public Use
  Company Number: US-BAYER-2015-367527

PATIENT
  Sex: Male

DRUGS (1)
  1. AVELOX [Suspect]
     Active Substance: MOXIFLOXACIN HYDROCHLORIDE
     Dosage: UNK
     Dates: start: 20130713

REACTIONS (8)
  - Activities of daily living impaired [None]
  - Emotional disorder [None]
  - Brachial plexopathy [None]
  - Stress [None]
  - Fear [None]
  - Injury [None]
  - Pain [None]
  - Anxiety [None]
